FAERS Safety Report 10364450 (Version 2)
Quarter: 2014Q3

REPORT INFORMATION
  Report Type: Spontaneous
  Country: US (occurrence: None)
  Receive Date: 20140801
  Receipt Date: 20140812
  Transmission Date: 20150326
  Serious: Yes (Other)
  Sender: FDA-Public Use
  Company Number: 2014AP003742

PATIENT
  Age: 39 Year
  Sex: Male

DRUGS (2)
  1. BUPROPION HYDROCHLORIDE. [Suspect]
     Active Substance: BUPROPION HYDROCHLORIDE
     Indication: FATIGUE
  2. BUPROPION HYDROCHLORIDE. [Suspect]
     Active Substance: BUPROPION HYDROCHLORIDE
     Indication: DISTURBANCE IN ATTENTION

REACTIONS (15)
  - Occipital neuralgia [None]
  - Convulsion [None]
  - Intentional self-injury [None]
  - Head injury [None]
  - Vomiting [None]
  - Presyncope [None]
  - Torticollis [None]
  - Gastrooesophageal reflux disease [None]
  - Choking [None]
  - Hallucination [None]
  - Aggression [None]
  - Brain stem syndrome [None]
  - Nausea [None]
  - Visual impairment [None]
  - Homicidal ideation [None]

NARRATIVE: CASE EVENT DATE: 20090926
